FAERS Safety Report 15368525 (Version 4)
Quarter: 2019Q1

REPORT INFORMATION
  Report Type: Spontaneous
  Country: US (occurrence: US)
  Receive Date: 20180910
  Receipt Date: 20190216
  Transmission Date: 20190417
  Serious: Yes (Other)
  Sender: FDA-Public Use
  Company Number: US-PRINSTON PHARMACEUTICAL INC.-2018PRN01184

PATIENT
  Age: 65 Year
  Sex: Female
  Weight: 101.13 kg

DRUGS (1)
  1. VALSARTAN AND HYDROCHLOROTHIAZIDE [Suspect]
     Active Substance: HYDROCHLOROTHIAZIDE\VALSARTAN
     Indication: HYPERTENSION
     Dosage: 160 MG, 1X/DAY
     Route: 048
     Dates: end: 2018

REACTIONS (13)
  - White blood cell disorder [Not Recovered/Not Resolved]
  - Haematocrit abnormal [Recovered/Resolved]
  - Monocyte percentage abnormal [Not Recovered/Not Resolved]
  - Rectal haemorrhage [Recovered/Resolved]
  - Blood chloride abnormal [Recovered/Resolved]
  - Red cell distribution width abnormal [Not Recovered/Not Resolved]
  - Neoplasm malignant [Recovered/Resolved]
  - Blood glucose abnormal [Recovered/Resolved]
  - Lymphocyte count abnormal [Not Recovered/Not Resolved]
  - Haemoglobin abnormal [Recovered/Resolved]
  - Blood calcium abnormal [Recovered/Resolved]
  - Red blood cell count abnormal [Not Recovered/Not Resolved]
  - Mean cell volume abnormal [Recovered/Resolved]

NARRATIVE: CASE EVENT DATE: 20160205
